FAERS Safety Report 6515836-0 (Version None)
Quarter: 2009Q4

REPORT INFORMATION
  Report Type: 
  Country: None (occurrence: None)
  Receive Date: 20091223
  Receipt Date: 20090723
  Transmission Date: 20100525
  Serious: Yes (Other)
  Sender: FDA-Public Use
  Company Number: US-BAYER-200827289NA

PATIENT
  Age: 60 Year
  Sex: Female
  Weight: 98 kg

DRUGS (20)
  1. MAGNEVIST [Suspect]
     Indication: COMPUTERISED TOMOGRAM
  2. OMNISCAN [Suspect]
     Indication: COMPUTERISED TOMOGRAM
  3. OPTIMARK [Suspect]
     Indication: COMPUTERISED TOMOGRAM
  4. UNSPECIFIED GADOLINIUM CONTRAST AGENT [Suspect]
     Indication: ANGIOGRAM
     Dates: start: 20030226, end: 20030226
  5. CELLCEPT [Concomitant]
  6. HYDROCHLOROTHIAZIDE [Concomitant]
  7. BACTRIM [Concomitant]
  8. PROGRAF [Concomitant]
  9. TERCONAZOLE [Concomitant]
  10. VALCYTE [Concomitant]
  11. VYTORIN [Concomitant]
  12. TACROLIMUS [Concomitant]
  13. NORVASC [Concomitant]
  14. ARANESP [Concomitant]
  15. SEVELAMER [Concomitant]
  16. RENAGEL [Concomitant]
  17. CALCIUM GLUCONATE [Concomitant]
  18. COLCHICINE [Concomitant]
     Indication: GOUT
     Dates: start: 20070301
  19. KEFLEX [Concomitant]
     Indication: GOUT
     Dates: start: 20070301
  20. NEUPOGEN [Concomitant]
     Indication: FEBRILE NEUTROPENIA
     Dates: start: 20070401

REACTIONS (24)
  - ANXIETY [None]
  - CLUMSINESS [None]
  - DRY SKIN [None]
  - EMOTIONAL DISTRESS [None]
  - ERYTHEMA [None]
  - FIBROSIS [None]
  - GAIT DISTURBANCE [None]
  - INJURY [None]
  - JOINT RANGE OF MOTION DECREASED [None]
  - JOINT STIFFNESS [None]
  - MUSCULAR WEAKNESS [None]
  - NEPHROGENIC SYSTEMIC FIBROSIS [None]
  - OEDEMA PERIPHERAL [None]
  - PAIN [None]
  - PAIN IN EXTREMITY [None]
  - QUALITY OF LIFE DECREASED [None]
  - RASH [None]
  - SKIN DISCOLOURATION [None]
  - SKIN FIBROSIS [None]
  - SKIN HYPERPIGMENTATION [None]
  - SKIN HYPERTROPHY [None]
  - SKIN INDURATION [None]
  - SKIN LESION [None]
  - SKIN PLAQUE [None]
